FAERS Safety Report 15777356 (Version 3)
Quarter: 2019Q1

REPORT INFORMATION
  Report Type: Spontaneous
  Country: US (occurrence: US)
  Receive Date: 20181231
  Receipt Date: 20190104
  Transmission Date: 20190417
  Serious: Yes (Other)
  Sender: FDA-Public Use
  Company Number: US-PFIZER INC-2018530011

PATIENT
  Age: 37 Year
  Sex: Female

DRUGS (2)
  1. FENTANYL CITRATE. [Suspect]
     Active Substance: FENTANYL CITRATE
     Indication: SEDATION
     Dosage: 25 UG, UNK, (LOW DOSE)
     Route: 040
  2. FENTANYL CITRATE. [Suspect]
     Active Substance: FENTANYL CITRATE
     Indication: ANALGESIC THERAPY
     Dosage: 25 UG, UNK, (LOW DOSE)
     Route: 040

REACTIONS (2)
  - Muscle rigidity [Recovered/Resolved]
  - Toxicity to various agents [Unknown]
